FAERS Safety Report 4308200-6 (Version None)
Quarter: 2004Q1

REPORT INFORMATION
  Report Type: 
  Country: None (occurrence: None)
  Receive Date: 20040301
  Receipt Date: 20030815
  Transmission Date: 20041129
  Serious: No
  Sender: FDA-Public Use
  Company Number: US-BRISTOL-MYERS SQUIBB COMPANY-12357208

PATIENT
  Age: 22 Year
  Sex: Female

DRUGS (2)
  1. GLUCOPHAGE [Suspect]
     Indication: DIABETES MELLITUS
     Dosage: THERAPY TO:  ^LATE FEB-2003 OR EARLY MAR-2003^
     Route: 048
     Dates: start: 20021101
  2. PRENATAL VITAMINS [Concomitant]

REACTIONS (2)
  - PREGNANCY [None]
  - PREMATURE BABY [None]
